FAERS Safety Report 9886148 (Version 3)
Quarter: 2014Q1

REPORT INFORMATION
  Report Type: Report from Study
  Country: JP (occurrence: JP)
  Receive Date: 20140210
  Receipt Date: 20140317
  Transmission Date: 20141002
  Serious: Yes (Life-Threatening, Hospitalization)
  Sender: FDA-Public Use
  Company Number: JP-PFIZER INC-2014034770

PATIENT
  Age: 63 Year
  Sex: Male
  Weight: 62.3 kg

DRUGS (6)
  1. XALKORI [Suspect]
     Indication: NON-SMALL CELL LUNG CANCER
     Dosage: 250 MG, 2X/DAY
     Route: 048
     Dates: start: 20130412, end: 20130531
  2. ADOFEED [Concomitant]
     Indication: BACK PAIN
     Dosage: UNK
     Route: 062
     Dates: start: 20130412, end: 20130529
  3. MEDICON [Concomitant]
     Dosage: 15 MG, 3X/DAY
     Route: 048
     Dates: start: 20130409, end: 20130515
  4. NEXIUM [Concomitant]
     Dosage: 20 MG, 1X/DAY
     Route: 048
     Dates: start: 20130308
  5. NOVAMIN [Concomitant]
     Indication: NAUSEA
     Dosage: 5 MG, 3X/DAY
     Route: 048
     Dates: start: 20130414
  6. SENNOSIDE [Concomitant]
     Dosage: 24 MG, AS NEEDED
     Route: 048
     Dates: start: 20130417, end: 20130627

REACTIONS (1)
  - Plasma cell myeloma [Not Recovered/Not Resolved]
